FAERS Safety Report 20596658 (Version 2)
Quarter: 2022Q1

REPORT INFORMATION
  Report Type: Report from Study
  Country: CN (occurrence: CN)
  Receive Date: 20220315
  Receipt Date: 20220328
  Transmission Date: 20220423
  Serious: Yes (Hospitalization)
  Sender: FDA-Public Use
  Company Number: CN-ZAILAB-ZAI202200230

PATIENT
  Age: 59 Year
  Sex: Male
  Weight: 63 kg

DRUGS (1)
  1. RIPRETINIB [Suspect]
     Active Substance: RIPRETINIB
     Indication: Gastrointestinal stromal tumour
     Dosage: 150 MG, QD
     Route: 048
     Dates: start: 20210722, end: 20220303

REACTIONS (1)
  - Melaena [Not Recovered/Not Resolved]

NARRATIVE: CASE EVENT DATE: 20220220
